FAERS Safety Report 17760796 (Version 1)
Quarter: 2020Q2

REPORT INFORMATION
  Report Type: Spontaneous
  Country: US (occurrence: US)
  Receive Date: 20200508
  Receipt Date: 20200508
  Transmission Date: 20200714
  Serious: No
  Sender: FDA-Public Use
  Company Number: None

PATIENT
  Age: 73 Year
  Sex: Female
  Weight: 61.38 kg

DRUGS (11)
  1. COENZYME Q10 [Concomitant]
     Active Substance: UBIDECARENONE
  2. RED YEAST RICE EXTRACT [Concomitant]
  3. LOSARTAN POTASSIUM. [Concomitant]
     Active Substance: LOSARTAN POTASSIUM
  4. ESOMEPRAZOLE. [Concomitant]
     Active Substance: ESOMEPRAZOLE MAGNESIUM
  5. ANASTROZOLE. [Concomitant]
     Active Substance: ANASTROZOLE
  6. OMEGA 3 FISH OIL [Concomitant]
     Active Substance: FISH OIL\OMEGA-3 FATTY ACIDS
  7. VITAMIN C [Concomitant]
     Active Substance: ASCORBIC ACID
  8. CELEBREX [Concomitant]
     Active Substance: CELECOXIB
  9. VERZENIO [Suspect]
     Active Substance: ABEMACICLIB
     Indication: BREAST CANCER FEMALE
     Route: 048
     Dates: start: 20191009, end: 20200508
  10. MELATONIN + L THEANINE [Concomitant]
  11. GLUCOSAMINE CHONDROITIN [Concomitant]
     Active Substance: CHONDROITIN SULFATE (BOVINE)\GLUCOSAMINE HYDROCHLORIDE

REACTIONS (1)
  - Pain [None]

NARRATIVE: CASE EVENT DATE: 20200508
